FAERS Safety Report 25044555 (Version 1)
Quarter: 2025Q1

REPORT INFORMATION
  Report Type: Spontaneous
  Country: CN (occurrence: CN)
  Receive Date: 20250306
  Receipt Date: 20250306
  Transmission Date: 20250409
  Serious: Yes (Other)
  Sender: ABBVIE
  Company Number: CN-PFIZER INC-PV202500025188

PATIENT
  Age: 62 Year
  Sex: Male
  Weight: 60 kg

DRUGS (3)
  1. AVIBACTAM SODIUM\CEFTAZIDIME [Suspect]
     Active Substance: AVIBACTAM SODIUM\CEFTAZIDIME
     Indication: Antibiotic prophylaxis
     Route: 065
  2. AVIBACTAM SODIUM\CEFTAZIDIME [Suspect]
     Active Substance: AVIBACTAM SODIUM\CEFTAZIDIME
     Indication: Antibiotic prophylaxis
     Route: 041
     Dates: start: 20250131, end: 20250219
  3. AZTREONAM [Concomitant]
     Active Substance: AZTREONAM
     Indication: Antibiotic prophylaxis
     Route: 065
     Dates: start: 20250131

REACTIONS (5)
  - Delirium [Recovering/Resolving]
  - Somnolence [Recovering/Resolving]
  - Headache [Recovering/Resolving]
  - Dizziness [Recovering/Resolving]
  - Drug level increased [Recovering/Resolving]

NARRATIVE: CASE EVENT DATE: 20250213
